FAERS Safety Report 4612703-4 (Version None)
Quarter: 2005Q1

REPORT INFORMATION
  Report Type: 
  Country: None (occurrence: None)
  Receive Date: 20050316
  Receipt Date: 20050304
  Transmission Date: 20050727
  Serious: Yes (Disabling)
  Sender: FDA-Public Use
  Company Number: 2005040076

PATIENT
  Age: 33 Year
  Sex: Female
  Weight: 63.5036 kg

DRUGS (2)
  1. DEPO-PROVERA [Suspect]
     Indication: ILL-DEFINED DISORDER
     Dosage: SEE IMAGE
     Route: 030
     Dates: start: 19930201, end: 19930201
  2. DEPO-PROVERA [Suspect]
     Indication: ILL-DEFINED DISORDER
     Dosage: SEE IMAGE
     Route: 030
     Dates: start: 20050205, end: 20050205

REACTIONS (6)
  - ANKLE FRACTURE [None]
  - DECREASED ACTIVITY [None]
  - FALL [None]
  - MOVEMENT DISORDER [None]
  - SPINAL FRACTURE [None]
  - UPPER LIMB FRACTURE [None]
